FAERS Safety Report 21484130 (Version 2)
Quarter: 2022Q4

REPORT INFORMATION
  Report Type: Spontaneous
  Country: US (occurrence: US)
  Receive Date: 20221020
  Receipt Date: 20221216
  Transmission Date: 20230112
  Serious: Yes (Other)
  Sender: FDA-Public Use
  Company Number: US-ELI_LILLY_AND_COMPANY-US202210003967

PATIENT
  Sex: Female

DRUGS (2)
  1. BEBTELOVIMAB [Suspect]
     Active Substance: BEBTELOVIMAB
     Indication: COVID-19
     Dosage: 175 MG, SINGLE
     Route: 042
     Dates: start: 20220923, end: 20220923
  2. XYZAL [Concomitant]
     Active Substance: LEVOCETIRIZINE DIHYDROCHLORIDE
     Indication: Product used for unknown indication
     Dosage: UNK, UNKNOWN
     Route: 065

REACTIONS (16)
  - Bradycardia [Not Recovered/Not Resolved]
  - Injection site induration [Recovering/Resolving]
  - Injection site bruising [Recovering/Resolving]
  - Chest discomfort [Recovering/Resolving]
  - Body temperature increased [Recovered/Resolved]
  - Headache [Recovering/Resolving]
  - Swelling face [Recovered/Resolved]
  - Lip swelling [Recovered/Resolved]
  - Pharyngeal swelling [Recovered/Resolved]
  - Throat irritation [Unknown]
  - Myalgia [Recovered/Resolved]
  - Palpitations [Not Recovered/Not Resolved]
  - Chest pain [Not Recovered/Not Resolved]
  - Hypersensitivity [Recovering/Resolving]
  - Nausea [Recovered/Resolved]
  - Pruritus [Unknown]
